FAERS Safety Report 7939073-8 (Version None)
Quarter: 2011Q4

REPORT INFORMATION
  Report Type: 
  Country: None (occurrence: None)
  Receive Date: 20111124
  Receipt Date: 20111117
  Transmission Date: 20120403
  Serious: Yes (Hospitalization)
  Sender: FDA-Public Use
  Company Number: AU-PFIZER INC-2011230464

PATIENT
  Age: 13 Year
  Sex: Female

DRUGS (1)
  1. VFEND [Suspect]
     Indication: INFECTION PROPHYLAXIS

REACTIONS (3)
  - DRUG DISPENSING ERROR [None]
  - UNDERDOSE [None]
  - INFECTION [None]
